FAERS Safety Report 12703574 (Version 2)
Quarter: 2016Q4

REPORT INFORMATION
  Report Type: Report from Study
  Country: BR (occurrence: BR)
  Receive Date: 20160831
  Receipt Date: 20161018
  Transmission Date: 20170207
  Serious: Yes (Hospitalization)
  Sender: FDA-Public Use
  Company Number: PHHY2016BR118097

PATIENT
  Sex: Female
  Weight: 65 kg

DRUGS (1)
  1. EXJADE [Suspect]
     Active Substance: DEFERASIROX
     Indication: IRON OVERLOAD
     Dosage: 1500 MG (6 DF OF 250 MG), UNK
     Route: 065

REACTIONS (8)
  - Fatigue [Unknown]
  - Blood iron increased [Unknown]
  - Haemoglobin abnormal [Unknown]
  - Blood disorder [Unknown]
  - Asthenia [Unknown]
  - Back pain [Unknown]
  - Drug intolerance [Unknown]
  - Malaise [Unknown]
